FAERS Safety Report 5996477-0 (Version None)
Quarter: 2008Q4

REPORT INFORMATION
  Report Type: 
  Country: None (occurrence: None)
  Receive Date: 20081212
  Receipt Date: 20080621
  Transmission Date: 20090506
  Serious: No
  Sender: FDA-Public Use
  Company Number: US-AMGEN-KDL288963

PATIENT
  Sex: Female

DRUGS (3)
  1. ENBREL [Suspect]
     Indication: RHEUMATOID ARTHRITIS
     Route: 058
     Dates: start: 20070905
  2. PLAQUENIL [Concomitant]
     Dates: start: 19980101
  3. METHOTREXATE [Concomitant]
     Route: 048
     Dates: start: 20050101

REACTIONS (3)
  - JOINT DISLOCATION [None]
  - PHARYNGITIS STREPTOCOCCAL [None]
  - VIRAL INFECTION [None]
